FAERS Safety Report 11508825 (Version 1)
Quarter: 2015Q3

REPORT INFORMATION
  Report Type: Spontaneous
  Country: US (occurrence: US)
  Receive Date: 20150903
  Receipt Date: 20150903
  Transmission Date: 20151125
  Serious: No
  Sender: FDA-Public Use
  Company Number: US-ELI_LILLY_AND_COMPANY-US201002000532

PATIENT
  Age: 70 Year
  Sex: Male

DRUGS (6)
  1. HUMULIN 50/50 [Concomitant]
     Active Substance: INSULIN HUMAN
     Dosage: 25 U, EACH MORNING
     Dates: start: 2005
  2. HUMULIN 50/50 [Concomitant]
     Active Substance: INSULIN HUMAN
     Dosage: 45 U, EACH EVENING
     Dates: start: 2005
  3. METFORMIN [Concomitant]
     Active Substance: METFORMIN HYDROCHLORIDE
     Dosage: 1000 MG, 2/D
  4. HUMULIN 50/50 [Concomitant]
     Active Substance: INSULIN HUMAN
     Dosage: 8 U, DAILY (1/D)
     Dates: start: 2005
  5. GLYBURIDE. [Concomitant]
     Active Substance: GLYBURIDE
     Dosage: 10 MG, DAILY (1/D)
  6. HUMALOG [Suspect]
     Active Substance: INSULIN LISPRO
     Dosage: 50 U, DAILY (1/D)
     Dates: start: 20080102

REACTIONS (1)
  - Wrong technique in product usage process [Recovered/Resolved]

NARRATIVE: CASE EVENT DATE: 20100130
